FAERS Safety Report 25811843 (Version 1)
Quarter: 2025Q3

REPORT INFORMATION
  Report Type: Spontaneous
  Country: MD (occurrence: MD)
  Receive Date: 20250917
  Receipt Date: 20250917
  Transmission Date: 20251021
  Serious: Yes (Hospitalization)
  Sender: MACLEODS
  Company Number: MD-MACLEODS PHARMA-MAC2025055211

PATIENT

DRUGS (19)
  1. PYRAZINAMIDE [Suspect]
     Active Substance: PYRAZINAMIDE
     Indication: Tuberculosis
     Dosage: 400 MG
     Route: 048
     Dates: start: 20250206, end: 20250216
  2. PYRAZINAMIDE [Suspect]
     Active Substance: PYRAZINAMIDE
     Indication: Pulmonary tuberculosis
  3. PYRAZINAMIDE [Suspect]
     Active Substance: PYRAZINAMIDE
     Indication: Renal tuberculosis
  4. PYRAZINAMIDE [Suspect]
     Active Substance: PYRAZINAMIDE
     Indication: Pleurisy
  5. ISONIAZID [Suspect]
     Active Substance: ISONIAZID
     Indication: Tuberculosis
     Dosage: 300MG, MICRO LABS LIMITED, INDIA
     Route: 048
     Dates: start: 20250206, end: 20250223
  6. ISONIAZID [Suspect]
     Active Substance: ISONIAZID
     Indication: Pulmonary tuberculosis
  7. ISONIAZID [Suspect]
     Active Substance: ISONIAZID
     Indication: Renal tuberculosis
  8. ISONIAZID [Suspect]
     Active Substance: ISONIAZID
     Indication: Pleurisy
  9. RIFAPENTINE [Suspect]
     Active Substance: RIFAPENTINE
     Indication: Tuberculosis
     Dosage: 300 MG, LUPIN LTD, INDIA
     Route: 048
     Dates: start: 20250206, end: 20250223
  10. RIFAPENTINE [Suspect]
     Active Substance: RIFAPENTINE
     Indication: Pulmonary tuberculosis
  11. RIFAPENTINE [Suspect]
     Active Substance: RIFAPENTINE
     Indication: Renal tuberculosis
  12. RIFAPENTINE [Suspect]
     Active Substance: RIFAPENTINE
     Indication: Pleurisy
  13. MOXIFLOXACIN HYDROCHLORIDE [Suspect]
     Active Substance: MOXIFLOXACIN HYDROCHLORIDE
     Indication: Tuberculosis
     Dosage: 400 MG, MSN LABORATORIES PRIVATE LIMITED, INDIA
     Route: 048
     Dates: start: 20250206, end: 20250223
  14. MOXIFLOXACIN HYDROCHLORIDE [Suspect]
     Active Substance: MOXIFLOXACIN HYDROCHLORIDE
     Indication: Pulmonary tuberculosis
  15. MOXIFLOXACIN HYDROCHLORIDE [Suspect]
     Active Substance: MOXIFLOXACIN HYDROCHLORIDE
     Indication: Renal tuberculosis
  16. MOXIFLOXACIN HYDROCHLORIDE [Suspect]
     Active Substance: MOXIFLOXACIN HYDROCHLORIDE
     Indication: Pleurisy
  17. DIETARY SUPPLEMENT\HERBALS\MILK THISTLE [Concomitant]
     Active Substance: MILK THISTLE
     Indication: Hepatitis
     Dosage: TAKE 1 CAPSULE 140 MG 2 TIMES A DAY
     Route: 065
     Dates: start: 20250206
  18. Hepaurs [Concomitant]
     Indication: Hepatitis
     Dosage: TAKE 1 CAPSULE 2 TIMES A DAY
     Route: 065
     Dates: start: 20250217
  19. Aminoplasmal hepa [Concomitant]
     Indication: Hepatitis
     Route: 042
     Dates: start: 20250217, end: 20250223

REACTIONS (1)
  - Drug-induced liver injury [Unknown]

NARRATIVE: CASE EVENT DATE: 20250222
